FAERS Safety Report 10335556 (Version 1)
Quarter: 2014Q3

REPORT INFORMATION
  Report Type: Spontaneous
  Country: US (occurrence: None)
  Receive Date: 20140722
  Receipt Date: 20140722
  Transmission Date: 20150326
  Serious: Yes (Other)
  Sender: FDA-Public Use
  Company Number: None

PATIENT
  Age: 49 Year
  Sex: Female
  Weight: 88.45 kg

DRUGS (2)
  1. DULOXETINE 60 MG [Suspect]
     Active Substance: DULOXETINE
     Indication: DEPRESSION
     Route: 048
  2. DULOXETINE 60 MG [Suspect]
     Active Substance: DULOXETINE
     Indication: FIBROMYALGIA
     Route: 048

REACTIONS (11)
  - Feeling abnormal [None]
  - Abnormal dreams [None]
  - Product substitution issue [None]
  - Therapeutic response changed [None]
  - Depression [None]
  - Hallucination, auditory [None]
  - Abnormal behaviour [None]
  - Crying [None]
  - Disease recurrence [None]
  - Pain [None]
  - Thinking abnormal [None]

NARRATIVE: CASE EVENT DATE: 20140705
